FAERS Safety Report 21908603 (Version 3)
Quarter: 2023Q2

REPORT INFORMATION
  Report Type: Report from Study
  Country: CA (occurrence: CA)
  Receive Date: 20230125
  Receipt Date: 20230414
  Transmission Date: 20230721
  Serious: Yes (Other)
  Sender: FDA-Public Use
  Company Number: CA-BAUSCH-BL-2022-024292

PATIENT
  Age: 62 Year
  Sex: Female

DRUGS (5)
  1. CONTRAVE [Suspect]
     Active Substance: BUPROPION HYDROCHLORIDE\NALTREXONE HYDROCHLORIDE
     Indication: Weight control
     Dosage: 90/8 MG, 2 TABLETS IN MORNING, 1 TABLET IN EVENING
     Route: 048
     Dates: start: 20221001, end: 20221013
  2. CONTRAVE [Suspect]
     Active Substance: BUPROPION HYDROCHLORIDE\NALTREXONE HYDROCHLORIDE
     Dosage: 90/8 MG, 2 TABLETS IN MORNING, 2 TABLETS IN EVENING
     Route: 048
     Dates: start: 20221014, end: 202211
  3. CONTRAVE [Suspect]
     Active Substance: BUPROPION HYDROCHLORIDE\NALTREXONE HYDROCHLORIDE
     Dosage: 90/8 MG, 1 TABLET IN MORNING, 1 TABLET IN EVENING
     Route: 048
     Dates: start: 2022
  4. CONTRAVE [Suspect]
     Active Substance: BUPROPION HYDROCHLORIDE\NALTREXONE HYDROCHLORIDE
     Dosage: 90/8 MG, 2 TABLETS BID
     Route: 048
     Dates: start: 20230213, end: 20230313
  5. TYLENOL WITH CODEINE [Suspect]
     Active Substance: ACETAMINOPHEN\CODEINE PHOSPHATE
     Indication: Headache
     Dosage: TYLENOL #3, PATIENT TOOK 1 AT BEDTIME AND WOKE UP AT 3 OR 4 IN THE MORNING  AND TOOK ANOTHER ONE
     Route: 065

REACTIONS (11)
  - Nerve compression [Recovered/Resolved]
  - Condition aggravated [Recovered/Resolved]
  - Nausea [Not Recovered/Not Resolved]
  - Headache [Not Recovered/Not Resolved]
  - Vomiting [Not Recovered/Not Resolved]
  - Therapy cessation [Unknown]
  - Inability to afford medication [Unknown]
  - Drug titration error [Unknown]
  - Contraindicated product administered [Unknown]
  - Intentional product use issue [Unknown]
  - Product size issue [Unknown]

NARRATIVE: CASE EVENT DATE: 20221001
